FAERS Safety Report 21331732 (Version 1)
Quarter: 2022Q3

REPORT INFORMATION
  Report Type: Spontaneous
  Country: JP (occurrence: JP)
  Receive Date: 20220914
  Receipt Date: 20220914
  Transmission Date: 20221027
  Serious: Yes (Life-Threatening)
  Sender: FDA-Public Use
  Company Number: JP-CHUGAI-2022029682

PATIENT
  Age: 69 Year
  Sex: Male

DRUGS (1)
  1. MIRCERA [Suspect]
     Active Substance: METHOXY POLYETHYLENE GLYCOL-EPOETIN BETA
     Indication: Nephrogenic anaemia
     Route: 041
     Dates: start: 20220628, end: 20220628

REACTIONS (5)
  - Anaphylactic shock [Recovering/Resolving]
  - Pruritus [Recovering/Resolving]
  - Blood pressure decreased [Recovering/Resolving]
  - Respiratory disorder [Recovering/Resolving]
  - Immobilisation syndrome [Recovering/Resolving]

NARRATIVE: CASE EVENT DATE: 20220628
